FAERS Safety Report 17730263 (Version 4)
Quarter: 2020Q2

REPORT INFORMATION
  Report Type: Spontaneous
  Country: DE (occurrence: DE)
  Receive Date: 20200430
  Receipt Date: 20200612
  Transmission Date: 20200714
  Serious: Yes (Other)
  Sender: FDA-Public Use
  Company Number: DE-EMD SERONO-E2B_90076992

PATIENT
  Sex: Female
  Weight: 43 kg

DRUGS (4)
  1. MAVENCLAD [Suspect]
     Active Substance: CLADRIBINE
     Dosage: SECOND YEAR SECOND MONTH THERAPY
     Dates: start: 20200227, end: 202003
  2. BOTOX [Concomitant]
     Active Substance: ONABOTULINUMTOXINA
     Indication: NEUROGENIC BLADDER
  3. MAVENCLAD [Suspect]
     Active Substance: CLADRIBINE
     Indication: RELAPSING MULTIPLE SCLEROSIS
     Dosage: FIRST YEAR THERAPY
     Dates: start: 201902
  4. MAVENCLAD [Suspect]
     Active Substance: CLADRIBINE
     Dosage: SECOND YEAR FIRST MONTH THERAPY
     Dates: start: 20200127

REACTIONS (2)
  - C-reactive protein increased [Unknown]
  - Lymphoedema [Not Recovered/Not Resolved]
